FAERS Safety Report 5485826-8 (Version None)
Quarter: 2007Q4

REPORT INFORMATION
  Report Type: 
  Country: None (occurrence: None)
  Receive Date: 20071015
  Receipt Date: 20071004
  Transmission Date: 20080405
  Serious: Yes (Hospitalization)
  Sender: FDA-Public Use
  Company Number: US-AMGEN-US246482

PATIENT
  Sex: Male

DRUGS (7)
  1. ETANERCEPT [Suspect]
     Indication: RHEUMATOID ARTHRITIS
     Route: 058
     Dates: start: 20000222, end: 20070726
  2. COZAAR [Concomitant]
     Route: 065
  3. CARDIZEM [Concomitant]
     Route: 065
  4. TRIAMTERENE AND HYDROCHLOROTHIAZIDE [Concomitant]
     Route: 065
  5. COUMADIN [Concomitant]
  6. FOLTX [Concomitant]
     Route: 065
  7. XALATAN [Concomitant]
     Route: 047

REACTIONS (3)
  - ABSCESS LIMB [None]
  - CELLULITIS [None]
  - THERMAL BURN [None]
